FAERS Safety Report 8504851-3 (Version None)
Quarter: 2012Q2

REPORT INFORMATION
  Report Type: 
  Country: None (occurrence: None)
  Receive Date: 20120405
  Receipt Date: 20100909
  Transmission Date: 20120825
  Serious: Yes (Disabling)
  Sender: FDA-Public Use
  Company Number: PHHY2010US60155

PATIENT
  Age: 63 Year
  Sex: Female
  Weight: 175 kg

DRUGS (3)
  1. PREDNISONE TAB [Concomitant]
  2. RECLAST [Suspect]
     Indication: OSTEOPOROSIS
     Dosage: 5 MG, INTRAVENOUS
     Route: 042
     Dates: start: 20100825
  3. KENALOG [Concomitant]

REACTIONS (6)
  - MUSCULOSKELETAL PAIN [None]
  - OEDEMA PERIPHERAL [None]
  - PAIN IN EXTREMITY [None]
  - HEAD DISCOMFORT [None]
  - PYREXIA [None]
  - ARTHRALGIA [None]
